FAERS Safety Report 7625798-0 (Version None)
Quarter: 2011Q3

REPORT INFORMATION
  Report Type: 
  Country: None (occurrence: None)
  Receive Date: 20110721
  Receipt Date: 20110711
  Transmission Date: 20111222
  Serious: Yes (Hospitalization)
  Sender: FDA-Public Use
  Company Number: GXKR2008GB09845

PATIENT
  Age: 34 Year
  Sex: Male

DRUGS (13)
  1. CLARITHROMYCIN [Suspect]
     Indication: PSEUDOMONAS INFECTION
     Dosage: UNK UKN, UNK
     Route: 065
  2. MEROPENEM [Suspect]
     Dosage: UNK UKN, UNK
     Route: 042
  3. INTERFERON GAMMA-1A [Suspect]
     Indication: PSEUDOMONAS INFECTION
     Dosage: UNK UKN, UNK
     Route: 058
  4. CIPROFLOXACIN [Suspect]
     Route: 048
  5. MINOCYCLINE HCL [Suspect]
     Indication: PSEUDOMONAS INFECTION
     Dosage: UNK UKN, UNK
     Route: 065
  6. INTERFERON GAMMA-1A [Suspect]
     Indication: MYCOBACTERIUM ABSCESSUS INFECTION
  7. AZITHROMYCIN [Suspect]
     Dosage: UNK
  8. OMEPRAZOLE [Suspect]
     Indication: GASTROOESOPHAGEAL REFLUX DISEASE
     Dosage: UNK UKN, UNK
     Route: 065
  9. MINOCYCLINE HCL [Suspect]
     Indication: MYCOBACTERIUM ABSCESSUS INFECTION
  10. TOBRAMYCIN [Suspect]
     Indication: PSEUDOMONAS INFECTION
     Dosage: UNK UKN, UNK
     Route: 065
  11. COLISTIN SULFATE [Suspect]
     Dosage: UNK UKN, UNK
     Route: 042
  12. CLARITHROMYCIN [Suspect]
     Indication: MYCOBACTERIUM ABSCESSUS INFECTION
  13. TOBRAMYCIN [Suspect]
     Indication: MYCOBACTERIUM ABSCESSUS INFECTION

REACTIONS (10)
  - CLOSTRIDIUM DIFFICILE COLITIS [None]
  - PSEUDOMEMBRANOUS COLITIS [None]
  - ABDOMINAL DISTENSION [None]
  - PYREXIA [None]
  - NAUSEA [None]
  - ABDOMINAL PAIN [None]
  - DEHYDRATION [None]
  - HYPOTENSION [None]
  - DIARRHOEA [None]
  - TACHYCARDIA [None]
